FAERS Safety Report 4299633-5 (Version None)
Quarter: 2004Q1

REPORT INFORMATION
  Report Type: 
  Country: None (occurrence: None)
  Receive Date: 20040219
  Receipt Date: 20020906
  Transmission Date: 20041129
  Serious: Yes (Disabling)
  Sender: FDA-Public Use
  Company Number: PHBS2002NO10799

PATIENT
  Age: 39 Year
  Sex: Male

DRUGS (4)
  1. LAMISIL [Suspect]
     Indication: NAIL TINEA
     Dosage: 250 MG/DAY
     Route: 048
     Dates: start: 20010301
  2. PARACET [Concomitant]
     Dosage: 1 DF X 6-8/D
     Route: 048
  3. IMOVANE [Concomitant]
     Dosage: 1/2 - 1 DF/D
     Route: 048
  4. SAROTEX [Concomitant]
     Dosage: 25 MG, QD
     Route: 048

REACTIONS (8)
  - DYSAESTHESIA [None]
  - MUSCLE CONTRACTIONS INVOLUNTARY [None]
  - MUSCLE SPASMS [None]
  - MYOKYMIA [None]
  - NEUROPATHIC PAIN [None]
  - NEUROPATHY [None]
  - PAIN [None]
  - PARAESTHESIA [None]
